FAERS Safety Report 6966770-3 (Version None)
Quarter: 2010Q3

REPORT INFORMATION
  Report Type: 
  Country: None (occurrence: None)
  Receive Date: 20100906
  Receipt Date: 20100901
  Transmission Date: 20110219
  Serious: Yes (Hospitalization)
  Sender: FDA-Public Use
  Company Number: US-BRISTOL-MYERS SQUIBB COMPANY-15266125

PATIENT
  Age: 35 Year
  Sex: Male

DRUGS (1)
  1. VIDEX [Suspect]

REACTIONS (1)
  - DRUG DOSE OMISSION [None]
